FAERS Safety Report 7508185-5 (Version None)
Quarter: 2011Q2

REPORT INFORMATION
  Report Type: 
  Country: None (occurrence: None)
  Receive Date: 20110527
  Receipt Date: 20110519
  Transmission Date: 20111010
  Serious: Yes (Hospitalization)
  Sender: FDA-Public Use
  Company Number: FR-PFIZER INC-2011112879

PATIENT
  Age: 78 Year
  Sex: Male

DRUGS (11)
  1. CORDARONE [Suspect]
     Dosage: 200 MG, ALTERNATE DAY
     Route: 048
     Dates: start: 20110321
  2. NEXIUM [Suspect]
     Dosage: 40 MG, 1X/DAY
     Route: 048
     Dates: end: 20110406
  3. AVODART [Suspect]
     Dosage: UNKNOWN DOSE, DAILY
     Route: 048
  4. TRAVATAN [Concomitant]
     Dosage: UNK
  5. RAMIPRIL [Suspect]
     Dosage: UNK
     Route: 048
     Dates: start: 20110406
  6. VASTAREL [Suspect]
     Dosage: 35 MG, 2X/DAY
     Route: 048
     Dates: end: 20110406
  7. RAMIPRIL [Suspect]
     Dosage: 1.25 MG, 2X/DAY
     Route: 048
     Dates: end: 20110406
  8. NOOTROPYL [Suspect]
     Dosage: 800 MG, 3X/DAY
     Route: 048
     Dates: end: 20110324
  9. POTASSIUM CHLORIDE [Suspect]
     Dosage: 600 MG, 1X/DAY
     Route: 048
  10. CORDARONE [Suspect]
     Dosage: 200 MG, UNK
     Route: 048
     Dates: end: 20110321
  11. LASIX [Suspect]
     Dosage: 20 MG, 2X/DAY
     Route: 048

REACTIONS (3)
  - AGGRESSION [None]
  - HYPOTHYROIDISM [None]
  - HALLUCINATION, VISUAL [None]
